FAERS Safety Report 6800965-4 (Version None)
Quarter: 2010Q2

REPORT INFORMATION
  Report Type: 
  Country: None (occurrence: None)
  Receive Date: 20100629
  Receipt Date: 20100625
  Transmission Date: 20101027
  Serious: Yes (Death)
  Sender: FDA-Public Use
  Company Number: PHHY2010BR40850

PATIENT

DRUGS (1)
  1. EXELON [Suspect]
     Dosage: UNK,UNK
     Route: 062

REACTIONS (1)
  - OVERDOSE [None]
